FAERS Safety Report 23153667 (Version 1)
Quarter: 2023Q4

REPORT INFORMATION
  Report Type: Spontaneous
  Country: US (occurrence: None)
  Receive Date: 20231106
  Receipt Date: 20231106
  Transmission Date: 20240110
  Serious: Yes (Death)
  Sender: FDA-Public Use
  Company Number: None

PATIENT
  Age: 66 Year
  Sex: Female
  Weight: 72 kg

DRUGS (1)
  1. OZEMPIC [Suspect]
     Active Substance: SEMAGLUTIDE
     Indication: Weight decreased
     Dosage: 1 MIU - MEGA INTERNATIONAL UNITS(1) (1,000.000S) SUBCUTANEOUS?
     Route: 058
     Dates: start: 20230301

REACTIONS (3)
  - Suspected product quality issue [None]
  - Chest pain [None]
  - Angiopathy [None]

NARRATIVE: CASE EVENT DATE: 20231104
